FAERS Safety Report 14599179 (Version 1)
Quarter: 2018Q1

REPORT INFORMATION
  Report Type: Spontaneous
  Country: US (occurrence: US)
  Receive Date: 20180305
  Receipt Date: 20180305
  Transmission Date: 20180509
  Serious: Yes (Hospitalization)
  Sender: FDA-Public Use
  Company Number: US-ELI_LILLY_AND_COMPANY-US201802009904

PATIENT
  Age: 3 Year
  Sex: Female

DRUGS (2)
  1. HUMALOG [Suspect]
     Active Substance: INSULIN LISPRO
     Indication: TYPE 1 DIABETES MELLITUS
     Dosage: UP TO 4 UNITS PER MEAL, PRN
     Route: 058
     Dates: end: 20180212
  2. LANTUS [Suspect]
     Active Substance: INSULIN GLARGINE
     Indication: DIABETES MELLITUS
     Dosage: 9 U, EACH MORNING
     Route: 065

REACTIONS (6)
  - Blood glucose increased [Recovering/Resolving]
  - Lethargy [Recovering/Resolving]
  - Drug hypersensitivity [Recovered/Resolved]
  - Eye movement disorder [Recovering/Resolving]
  - Diabetic ketoacidosis [Recovering/Resolving]
  - Injection site pruritus [Recovering/Resolving]

NARRATIVE: CASE EVENT DATE: 201802
